FAERS Safety Report 7299380-1 (Version None)
Quarter: 2011Q1

REPORT INFORMATION
  Report Type: 
  Country: None (occurrence: None)
  Receive Date: 20110217
  Receipt Date: 20110209
  Transmission Date: 20110831
  Serious: Yes (Hospitalization, Other)
  Sender: FDA-Public Use
  Company Number: B0694211A

PATIENT
  Sex: Male

DRUGS (5)
  1. TEGRETOL [Suspect]
     Indication: NEURALGIA
     Route: 048
     Dates: start: 20100824, end: 20101018
  2. ZYLORIC [Suspect]
     Indication: BLOOD URIC ACID INCREASED
     Route: 048
     Dates: start: 20100921, end: 20101018
  3. TAGAMET [Suspect]
     Indication: PRODUCT USED FOR UNKNOWN INDICATION
     Route: 065
  4. CRAVIT [Concomitant]
     Dates: start: 20101018
  5. GASMOTIN [Suspect]
     Indication: ABDOMINAL PAIN UPPER
     Route: 065
     Dates: start: 20100824, end: 20101018

REACTIONS (4)
  - ERYTHEMA [None]
  - PNEUMONIA [None]
  - RESPIRATORY DISORDER [None]
  - DRUG ERUPTION [None]
